FAERS Safety Report 23081886 (Version 2)
Quarter: 2024Q4

REPORT INFORMATION
  Report Type: Spontaneous
  Country: US (occurrence: US)
  Receive Date: 20231019
  Receipt Date: 20241014
  Transmission Date: 20250115
  Serious: No
  Sender: SANOFI AVENTIS
  Company Number: US-SA-SAC20231017000525

PATIENT
  Age: 65 Year
  Sex: Male

DRUGS (2)
  1. DUPIXENT [Suspect]
     Active Substance: DUPILUMAB
     Indication: Dermatitis atopic
     Dosage: 300 MG Q3W
     Route: 058
  2. DUPIXENT [Suspect]
     Active Substance: DUPILUMAB
     Indication: Rhinitis allergic
     Dosage: 300 MG QOW
     Route: 058

REACTIONS (6)
  - Onychomycosis [Unknown]
  - Acne [Unknown]
  - Rash [Unknown]
  - Eye pruritus [Unknown]
  - Off label use [Unknown]
  - Product use in unapproved indication [Unknown]
